FAERS Safety Report 22679338 (Version 9)
Quarter: 2024Q2

REPORT INFORMATION
  Report Type: Report from Study
  Country: US (occurrence: US)
  Receive Date: 20230707
  Receipt Date: 20240625
  Transmission Date: 20240716
  Serious: Yes (Other)
  Sender: FDA-Public Use
  Company Number: US-ACADIA PHARMACEUTICALS INC.-ACA-2023-TRF-002351

PATIENT
  Sex: Female

DRUGS (12)
  1. DAYBUE [Suspect]
     Active Substance: TROFINETIDE
     Indication: Rett syndrome
     Dosage: UNK
     Route: 065
     Dates: start: 202305
  2. DAYBUE [Suspect]
     Active Substance: TROFINETIDE
     Dosage: 10 MILLILITER, BID
     Route: 048
     Dates: start: 20230610
  3. DAYBUE [Suspect]
     Active Substance: TROFINETIDE
     Dosage: 7.5ML IN THE MORNINGS AND 6ML IN THE EVENINGS
     Route: 048
  4. DAYBUE [Suspect]
     Active Substance: TROFINETIDE
     Dosage: 22.5 MILLILITER, DAILY
     Route: 048
  5. DAYBUE [Suspect]
     Active Substance: TROFINETIDE
     Dosage: 15 MILLILITER, BID
     Route: 048
  6. DAYBUE [Suspect]
     Active Substance: TROFINETIDE
     Dosage: 10 MILLILITER, BID
     Route: 048
  7. DAYBUE [Suspect]
     Active Substance: TROFINETIDE
     Dosage: 18 MILLILITER, BID
     Route: 048
  8. DAYBUE [Suspect]
     Active Substance: TROFINETIDE
     Dosage: 50 MILLILITER, BID
     Route: 048
  9. DAYBUE [Suspect]
     Active Substance: TROFINETIDE
     Dosage: SLOW TITRATION AT 25ML, INCREASING BY 1-2ML EACH WEEK
     Route: 048
  10. DAYBUE [Suspect]
     Active Substance: TROFINETIDE
     Dosage: 25 MILLILITER, BID
     Route: 048
  11. DAYBUE [Suspect]
     Active Substance: TROFINETIDE
     Dosage: 50 MILLILITER, BID
     Route: 048
  12. DAYBUE [Suspect]
     Active Substance: TROFINETIDE
     Dosage: 27 MILLILITER, BID
     Route: 048

REACTIONS (15)
  - Seizure [Not Recovered/Not Resolved]
  - Product dose omission issue [Unknown]
  - Flatulence [Not Recovered/Not Resolved]
  - Faeces soft [Recovering/Resolving]
  - Frequent bowel movements [Not Recovered/Not Resolved]
  - Underdose [Not Recovered/Not Resolved]
  - Sluggishness [Not Recovered/Not Resolved]
  - COVID-19 [Not Recovered/Not Resolved]
  - Diarrhoea [Not Recovered/Not Resolved]
  - Vomiting [Recovered/Resolved]
  - Diarrhoea [Not Recovered/Not Resolved]
  - Diarrhoea [Not Recovered/Not Resolved]
  - Vomiting [Recovered/Resolved]
  - Vomiting [Unknown]
  - Nasopharyngitis [Recovering/Resolving]

NARRATIVE: CASE EVENT DATE: 20230101
